FAERS Safety Report 17186436 (Version 1)
Quarter: 2019Q4

REPORT INFORMATION
  Report Type: Report from Study
  Country: KR (occurrence: KR)
  Receive Date: 20191220
  Receipt Date: 20191220
  Transmission Date: 20200122
  Serious: Yes (Hospitalization)
  Sender: FDA-Public Use
  Company Number: KR-ALEXION PHARMACEUTICALS INC.-A201910451

PATIENT
  Sex: Female
  Weight: 44.6 kg

DRUGS (13)
  1. ECULIZUMAB [Suspect]
     Active Substance: ECULIZUMAB
     Dosage: UNK
     Route: 065
     Dates: start: 20190618
  2. ECULIZUMAB [Suspect]
     Active Substance: ECULIZUMAB
     Dosage: 1200 MG, UNK
     Route: 065
     Dates: start: 20190702
  3. ECULIZUMAB [Suspect]
     Active Substance: ECULIZUMAB
     Indication: NEUROMYELITIS OPTICA SPECTRUM DISORDER
     Dosage: UNK
     Route: 065
     Dates: start: 20160414
  4. POTASSIUM CITRATE. [Concomitant]
     Active Substance: POTASSIUM CITRATE
     Indication: GASTRITIS PROPHYLAXIS
     Dosage: 200 MG, QD
     Route: 048
     Dates: start: 20190129
  5. MIRABEGRON [Concomitant]
     Active Substance: MIRABEGRON
     Indication: NEUROMYELITIS OPTICA SPECTRUM DISORDER
     Dosage: UNK, QD
     Route: 048
     Dates: start: 20190327
  6. ECULIZUMAB [Suspect]
     Active Substance: ECULIZUMAB
     Dosage: 240 MG, UNK
     Route: 042
     Dates: start: 20171024, end: 20171024
  7. RANITIDINE HYDROCHLORIDE. [Concomitant]
     Active Substance: RANITIDINE HYDROCHLORIDE
     Indication: GASTRITIS PROPHYLAXIS
     Dosage: 168 MG, QD
     Route: 048
     Dates: start: 20190129
  8. MINOXYL [Concomitant]
     Active Substance: MINOXIDIL
     Indication: ALOPECIA
     Dosage: UNK, BID
     Route: 048
     Dates: start: 20190129
  9. METHYLPREDNISOLONE. [Concomitant]
     Active Substance: METHYLPREDNISOLONE
     Indication: PROPHYLAXIS
     Dosage: 4 MG, QD
     Route: 048
     Dates: start: 20171006
  10. CALCIUM CARBONATE W/COLECALCIFEROL [Concomitant]
     Active Substance: CALCIUM CARBONATE\CHOLECALCIFEROL
     Indication: PROPHYLAXIS
     Dosage: 1250 MG, QD
     Route: 048
     Dates: start: 20190129
  11. SUCRAL [Concomitant]
     Indication: GASTRITIS PROPHYLAXIS
     Dosage: 600 MG, QD
     Route: 048
     Dates: start: 20190129
  12. PREGABALIN. [Concomitant]
     Active Substance: PREGABALIN
     Indication: NEUROMYELITIS OPTICA SPECTRUM DISORDER
     Dosage: 75 MG, BID
     Route: 048
     Dates: start: 20190129, end: 20190704
  13. ALBIS [Concomitant]
     Active Substance: BISMUTH SUBCITRATE\RANITIDINE HYDROCHLORIDE\SUCRALFATE
     Indication: PROPHYLAXIS
     Dosage: 1 UNK, QD
     Route: 048
     Dates: start: 20190129

REACTIONS (1)
  - Muscular weakness [Recovered/Resolved]

NARRATIVE: CASE EVENT DATE: 20190627
